FAERS Safety Report 7563727-9 (Version None)
Quarter: 2011Q2

REPORT INFORMATION
  Report Type: 
  Country: None (occurrence: None)
  Receive Date: 20110622
  Receipt Date: 20110615
  Transmission Date: 20111010
  Serious: Yes (Other)
  Sender: FDA-Public Use
  Company Number: DK-MERCK-1106DNK00003

PATIENT
  Age: 66 Year
  Sex: Female

DRUGS (5)
  1. ZOCOR [Suspect]
     Route: 048
  2. ITRACONAZOLE [Suspect]
     Route: 048
  3. LEVOTHYROXINE SODIUM [Suspect]
     Indication: HYPERTHYROIDISM
     Route: 048
  4. KETOCONAZOLE [Suspect]
     Route: 048
  5. FLUCONAZOLE [Suspect]
     Route: 048

REACTIONS (3)
  - ALOPECIA [None]
  - EAR DISCOMFORT [None]
  - HYPOACUSIS [None]
